FAERS Safety Report 21272894 (Version 1)
Quarter: 2022Q3

REPORT INFORMATION
  Report Type: Spontaneous
  Country: US (occurrence: US)
  Receive Date: 20220831
  Receipt Date: 20220831
  Transmission Date: 20221027
  Serious: Yes (Hospitalization, Other)
  Sender: FDA-Public Use
  Company Number: US-MLMSERVICE-20220816-3733311-1

PATIENT
  Age: 57 Year
  Sex: Female

DRUGS (4)
  1. DEXAMETHASONE [Interacting]
     Active Substance: DEXAMETHASONE
     Indication: COVID-19
     Route: 048
  2. APIXABAN [Interacting]
     Active Substance: APIXABAN
     Indication: Thrombosis prophylaxis
     Route: 048
  3. APIXABAN [Interacting]
     Active Substance: APIXABAN
     Indication: Anticoagulant therapy
  4. ASPIRIN [Concomitant]
     Active Substance: ASPIRIN
     Indication: Thrombosis prophylaxis
     Route: 048

REACTIONS (2)
  - Drug interaction [Unknown]
  - Hypercoagulation [Recovering/Resolving]
